FAERS Safety Report 6834153-2 (Version None)
Quarter: 2010Q3

REPORT INFORMATION
  Report Type: 
  Country: None (occurrence: None)
  Receive Date: 20100712
  Receipt Date: 20070611
  Transmission Date: 20110219
  Serious: Yes (Other)
  Sender: FDA-Public Use
  Company Number: US-PFIZER INC-2007028753

PATIENT
  Sex: Female
  Weight: 68 kg

DRUGS (11)
  1. VARENICLINE [Suspect]
     Indication: SMOKING CESSATION THERAPY
     Dates: start: 20070212
  2. ALBUTEROL [Concomitant]
  3. FOSAMAX [Concomitant]
  4. ASPIRIN [Concomitant]
  5. VITAMIN C [Concomitant]
  6. CALCIUM WITH VITAMIN D [Concomitant]
  7. LISINOPRIL [Concomitant]
  8. ADVAIR DISKUS 100/50 [Concomitant]
     Dosage: 500/50
  9. ATROVENT [Concomitant]
  10. VITAMINS [Concomitant]
  11. IBUPROFEN [Concomitant]

REACTIONS (6)
  - CHEST DISCOMFORT [None]
  - CHRONIC OBSTRUCTIVE PULMONARY DISEASE [None]
  - COUGH [None]
  - DRUG INEFFECTIVE [None]
  - DYSPNOEA [None]
  - MALAISE [None]
